FAERS Safety Report 8915540 (Version 1)
Quarter: 2012Q4

REPORT INFORMATION
  Report Type: 
  Country: DE (occurrence: DE)
  Receive Date: 20121119
  Receipt Date: 20121119
  Transmission Date: 20130627
  Serious: Yes (Other)
  Sender: FDA-Public Use
  Company Number: DE-ROCHE-1147826

PATIENT

DRUGS (2)
  1. RITUXIMAB [Suspect]
     Indication: PEMPHIGUS
     Route: 065
  2. RITUXIMAB [Suspect]
     Indication: PEMPHIGUS

REACTIONS (9)
  - Bacterial sepsis [Unknown]
  - Infusion related reaction [Unknown]
  - Herpes virus infection [Unknown]
  - Deep vein thrombosis [Unknown]
  - Granulocytopenia [Unknown]
  - Urticaria [Unknown]
  - Dyspnoea [Unknown]
  - Anaemia [Unknown]
  - Arthralgia [Unknown]
